FAERS Safety Report 21064471 (Version 3)
Quarter: 2022Q4

REPORT INFORMATION
  Report Type: Other
  Country: FR (occurrence: FR)
  Receive Date: 20220711
  Receipt Date: 20221017
  Transmission Date: 20230113
  Serious: Yes (Life-Threatening)
  Sender: FDA-Public Use
  Company Number: None

PATIENT
  Age: 71 Year
  Sex: Female

DRUGS (2)
  1. FOSTAMATINIB DISODIUM [Suspect]
     Active Substance: FOSTAMATINIB DISODIUM
     Indication: Immune thrombocytopenia
     Dosage: 100 MILLIGRAM, BID
     Route: 048
     Dates: start: 20220304, end: 20220524
  2. PREDNISONE [Concomitant]
     Active Substance: PREDNISONE
     Indication: Immune thrombocytopenia
     Dosage: UNK

REACTIONS (1)
  - Aortic dissection [Recovering/Resolving]

NARRATIVE: CASE EVENT DATE: 20220524
